FAERS Safety Report 4355849-0 (Version None)
Quarter: 2004Q2

REPORT INFORMATION
  Report Type: 
  Country: None (occurrence: None)
  Receive Date: 20040505
  Receipt Date: 20040421
  Transmission Date: 20050107
  Serious: Yes (Disabling)
  Sender: FDA-Public Use
  Company Number: TNZUK200400033

PATIENT
  Age: 41 Year
  Sex: Female
  Weight: 90 kg

DRUGS (1)
  1. INNOHEP [Suspect]
     Indication: DEEP VEIN THROMBOSIS
     Dosage: 16000 IU (16000 IU, 1 IN 1 D), SUBCUTANEOUS
     Route: 058
     Dates: start: 20040224, end: 20040308

REACTIONS (4)
  - FATIGUE [None]
  - HEPATITIS [None]
  - MALAISE [None]
  - NAUSEA [None]
